FAERS Safety Report 5258012-4 (Version None)
Quarter: 2007Q1

REPORT INFORMATION
  Report Type: 
  Country: None (occurrence: None)
  Receive Date: 20070307
  Receipt Date: 20061207
  Transmission Date: 20070707
  Serious: No
  Sender: FDA-Public Use
  Company Number: US-GLAXOSMITHKLINE-A0631017A

PATIENT
  Sex: Female

DRUGS (2)
  1. REQUIP [Suspect]
     Indication: RESTLESS LEGS SYNDROME
     Route: 048
  2. CIPRO [Suspect]
     Indication: PYELONEPHRITIS

REACTIONS (9)
  - AGITATION [None]
  - ANXIETY [None]
  - DIZZINESS [None]
  - DRUG INTERACTION [None]
  - HYPERHIDROSIS [None]
  - MENTAL IMPAIRMENT [None]
  - MUSCLE TWITCHING [None]
  - NAUSEA [None]
  - VOMITING [None]
